FAERS Safety Report 8549828-7 (Version None)
Quarter: 2012Q3

REPORT INFORMATION
  Report Type: 
  Country: None (occurrence: None)
  Receive Date: 20120730
  Receipt Date: 20120717
  Transmission Date: 20120928
  Serious: Yes (Other)
  Sender: FDA-Public Use
  Company Number: JP-ASTRAZENECA-2012SE52327

PATIENT
  Age: 73 Year
  Sex: Male

DRUGS (2)
  1. MEROPENEM [Suspect]
     Route: 042
  2. AMPICILLIN AND SULBACTAM [Suspect]
     Indication: PNEUMONIA ASPIRATION
     Route: 042

REACTIONS (2)
  - BACTERIAL TRANSLOCATION [None]
  - FUNGAEMIA [None]
